FAERS Safety Report 4379361-8 (Version None)
Quarter: 2004Q2

REPORT INFORMATION
  Report Type: 
  Country: None (occurrence: None)
  Receive Date: 20040614
  Receipt Date: 20040601
  Transmission Date: 20050107
  Serious: Yes (Hospitalization)
  Sender: FDA-Public Use
  Company Number: S04-USA-02800-01

PATIENT
  Age: 80 Year
  Sex: Female
  Weight: 63.5036 kg

DRUGS (4)
  1. NAMENDA [Suspect]
     Indication: SENILE DEMENTIA
     Dosage: 10 MG BID PO
     Route: 048
     Dates: start: 20040101, end: 20040216
  2. DOXEPIN HCL [Suspect]
     Indication: DEPRESSION
     Dosage: 50 MG BID PO
     Route: 048
     Dates: end: 20040216
  3. DOZXEPIN [Suspect]
     Indication: DEPRESSION
     Dosage: 25 MG QHS PO
     Route: 048
  4. NAPROSYN [Concomitant]

REACTIONS (19)
  - ACUTE MYOCARDIAL INFARCTION [None]
  - AGGRESSION [None]
  - BLOOD MAGNESIUM DECREASED [None]
  - BLOOD PRESSURE DECREASED [None]
  - CARDIAC FAILURE CONGESTIVE [None]
  - CONVULSION [None]
  - CYSTITIS ESCHERICHIA [None]
  - ELECTROCARDIOGRAM QT PROLONGED [None]
  - ELECTROCARDIOGRAM T WAVE ABNORMAL [None]
  - FAECAL INCONTINENCE [None]
  - GENERAL PHYSICAL HEALTH DETERIORATION [None]
  - OXYGEN SATURATION DECREASED [None]
  - RESPIRATORY RATE INCREASED [None]
  - SPEECH DISORDER [None]
  - STARING [None]
  - SYNCOPE [None]
  - TORSADE DE POINTES [None]
  - UPPER RESPIRATORY TRACT INFECTION [None]
  - WHEEZING [None]
